FAERS Safety Report 23533575 (Version 1)
Quarter: 2024Q1

REPORT INFORMATION
  Report Type: Other
  Country: US (occurrence: US)
  Receive Date: 20240216
  Receipt Date: 20240216
  Transmission Date: 20240409
  Serious: Yes (Death)
  Sender: FDA-Public Use
  Company Number: US-B.Braun Medical Inc.-2153306

PATIENT
  Age: 42 Year
  Sex: Female

DRUGS (3)
  1. STERILE WATER [Suspect]
     Active Substance: WATER
  2. METHAMPHETAMINE [Suspect]
     Active Substance: METHAMPHETAMINE
  3. KONJAC MANNAN [Suspect]
     Active Substance: KONJAC MANNAN

REACTIONS (2)
  - Death [Fatal]
  - Off label use [Fatal]
